FAERS Safety Report 12331013 (Version 1)
Quarter: 2016Q2

REPORT INFORMATION
  Report Type: Spontaneous
  Country: US (occurrence: US)
  Receive Date: 20160504
  Receipt Date: 20160504
  Transmission Date: 20160815
  Serious: No
  Sender: FDA-Public Use
  Company Number: US-MYLANLABS-2016M1011766

PATIENT
  Sex: Female

DRUGS (1)
  1. ZIPRASIDONE HYDROCHLORIDE. [Suspect]
     Active Substance: ZIPRASIDONE HYDROCHLORIDE
     Dosage: 20 MG, QD/PM
     Route: 048
     Dates: start: 201601

REACTIONS (1)
  - Dysgeusia [Not Recovered/Not Resolved]
